FAERS Safety Report 8608201 (Version 3)
Quarter: 2014Q1

REPORT INFORMATION
  Report Type: Spontaneous
  Country: US (occurrence: US)
  Receive Date: 20120611
  Receipt Date: 20140122
  Transmission Date: 20141002
  Serious: Yes (Hospitalization, Other)
  Sender: FDA-Public Use
  Company Number: US-ASTRAZENECA-2012SE35716

PATIENT
  Age: 49 Year
  Sex: Female

DRUGS (25)
  1. NEXIUM [Suspect]
     Indication: GASTROOESOPHAGEAL REFLUX DISEASE
     Route: 048
     Dates: start: 2004, end: 2012
  2. NEXIUM [Suspect]
     Indication: GASTROOESOPHAGEAL REFLUX DISEASE
     Dosage: TWICE A DAY YEARS AGO
     Route: 048
     Dates: start: 2004, end: 2012
  3. PRILOSEC OTC [Suspect]
     Indication: GASTROOESOPHAGEAL REFLUX DISEASE
     Route: 048
     Dates: start: 2004
  4. PROTONIX [Concomitant]
     Indication: GASTROOESOPHAGEAL REFLUX DISEASE
     Dates: start: 2004
  5. PEPTO BISMOL [Concomitant]
     Indication: ABDOMINAL DISCOMFORT
     Dosage: ONCE IN A WHILE
  6. OXYBUTYNIN [Concomitant]
     Indication: POLLAKIURIA
     Route: 048
  7. LISINOPRIL [Concomitant]
     Indication: HYPERTENSION
  8. ASPIRIN [Concomitant]
     Indication: CARDIAC DISORDER
     Dates: start: 201206
  9. METOPROLOL [Concomitant]
     Indication: HYPERTENSION
  10. TIZANIDINE [Concomitant]
     Indication: MUSCLE SPASMS
  11. LIPITOR [Concomitant]
     Indication: BLOOD CHOLESTEROL ABNORMAL
  12. MIRAPEX [Concomitant]
     Indication: RESTLESS LEGS SYNDROME
  13. BACLOFEN [Concomitant]
     Route: 048
     Dates: start: 201012
  14. METHOCARBAMOL [Concomitant]
     Dosage: 1-2 PRN Q6HRS
     Route: 048
  15. REGLAN [Concomitant]
  16. PRAMIPEXOLE [Concomitant]
     Route: 048
  17. GABAPENTIN [Concomitant]
     Route: 048
  18. PROAIR [Concomitant]
     Dosage: 2-4 PUFFS PRN Q3 HRS
  19. VICODIN [Concomitant]
     Dosage: PRN Q 8HOURS
     Route: 048
  20. ROBAXIN [Concomitant]
  21. VISTARIL [Concomitant]
  22. SALICYLATE [Concomitant]
  23. NAPROXEN [Concomitant]
  24. METFORMIN [Concomitant]
  25. NEURONTIN [Concomitant]

REACTIONS (25)
  - Lower limb fracture [Unknown]
  - Upper limb fracture [Unknown]
  - Bone cancer [Unknown]
  - Diabetic neuropathy [Unknown]
  - Homicidal ideation [Unknown]
  - Suicidal ideation [Unknown]
  - Rib fracture [Unknown]
  - Haematoma infection [Unknown]
  - Osteoporosis [Unknown]
  - Multiple fractures [Unknown]
  - Osteopenia [Unknown]
  - Calcium deficiency [Unknown]
  - Tendon pain [Unknown]
  - Movement disorder [Unknown]
  - Tendon injury [Unknown]
  - Diabetes mellitus [Unknown]
  - Back pain [Unknown]
  - Pain in extremity [Unknown]
  - Bone disorder [Unknown]
  - Bone pain [Unknown]
  - Osteogenesis imperfecta [Unknown]
  - Arthritis [Unknown]
  - Glaucoma [Unknown]
  - Vitamin D deficiency [Unknown]
  - Depression [Unknown]
